FAERS Safety Report 21781404 (Version 6)
Quarter: 2023Q1

REPORT INFORMATION
  Report Type: Spontaneous
  Country: US (occurrence: US)
  Receive Date: 20221227
  Receipt Date: 20230223
  Transmission Date: 20230418
  Serious: Yes (Other)
  Sender: FDA-Public Use
  Company Number: US-PFIZER INC-202201387389

PATIENT
  Age: 77 Year
  Sex: Female
  Weight: 58.97 kg

DRUGS (2)
  1. GENOTROPIN [Suspect]
     Active Substance: SOMATROPIN
     Dosage: 5 MG, 1X/DAY(5 CLICKS INJECTED EVERY EVENING)
     Dates: end: 20221215
  2. CORTISONE [Concomitant]
     Active Substance: CORTISONE
     Dosage: 20 MG, DAILY
     Route: 048
     Dates: start: 1993

REACTIONS (8)
  - Device mechanical issue [Unknown]
  - Device information output issue [Unknown]
  - Device power source issue [Unknown]
  - Product dose omission issue [Unknown]
  - Device malfunction [Unknown]
  - Headache [Not Recovered/Not Resolved]
  - Malaise [Unknown]
  - Expired device used [Unknown]

NARRATIVE: CASE EVENT DATE: 20220101
